FAERS Safety Report 8593480-1 (Version None)
Quarter: 2012Q3

REPORT INFORMATION
  Report Type: 
  Country: None (occurrence: None)
  Receive Date: 20120814
  Receipt Date: 20120809
  Transmission Date: 20120928
  Serious: Yes (Other)
  Sender: FDA-Public Use
  Company Number: FR-ABBOTT-12P-056-0967135-00

PATIENT
  Sex: Female

DRUGS (3)
  1. NORVIR [Suspect]
     Indication: ANTIRETROVIRAL THERAPY
     Dosage: TAKEN AT CONCEPTION
     Route: 048
     Dates: start: 20110124
  2. TRUVADA [Suspect]
     Indication: ANTIRETROVIRAL THERAPY
     Dosage: TAKEN AT CONCEPTION
     Route: 048
     Dates: start: 20110124
  3. REYATAZ [Suspect]
     Indication: ANTIRETROVIRAL THERAPY
     Dosage: TAKEN AT CONCEPTION
     Route: 048
     Dates: start: 20110124

REACTIONS (2)
  - ABORTION SPONTANEOUS [None]
  - AMNIOTIC FLUID VOLUME DECREASED [None]
